FAERS Safety Report 16711182 (Version 1)
Quarter: 2019Q4

REPORT INFORMATION
  Report Type: Spontaneous
  Country: US (occurrence: US)
  Receive Date: 20190812
  Receipt Date: 20190812
  Transmission Date: 20200122
  Serious: Yes (Other)
  Sender: FDA-Public Use
  Company Number: None

PATIENT
  Age: 35 Year
  Sex: Female
  Weight: 54 kg

DRUGS (1)
  1. ACNE HEALING PATCH (SALICYLIC ACID) [Suspect]
     Active Substance: SALICYLIC ACID
     Indication: ACNE
     Dates: start: 20190811, end: 20190812

REACTIONS (1)
  - Product use complaint [None]

NARRATIVE: CASE EVENT DATE: 20190812
